FAERS Safety Report 9201813 (Version 2)
Quarter: 2013Q4

REPORT INFORMATION
  Report Type: Spontaneous
  Country: US (occurrence: US)
  Receive Date: 20130401
  Receipt Date: 20131126
  Transmission Date: 20140711
  Serious: Yes (Other)
  Sender: FDA-Public Use
  Company Number: US-BAYER-2013-038143

PATIENT
  Age: 28 Year
  Sex: Female

DRUGS (9)
  1. YAZ [Suspect]
  2. YASMIN [Suspect]
  3. TERCONAZOLE [Concomitant]
     Dosage: 0.4 %
     Route: 061
     Dates: start: 20090515
  4. PAROXETINE [Concomitant]
     Dosage: 10 MG, UNK
     Route: 048
     Dates: start: 20090603
  5. FEXOFENADINE HYDROCHLORIDE [Concomitant]
     Dosage: 180 MG, UNK
     Dates: start: 20090605
  6. ACID REDUCER [Concomitant]
     Dosage: UNK
     Route: 048
     Dates: start: 20090720
  7. PREVACID [Concomitant]
     Dosage: 30 MG, UNK
     Route: 048
     Dates: start: 20090720
  8. NEXIUM [Concomitant]
     Dosage: 40 MG, UNK
     Dates: start: 20090805
  9. ALLEGRA [Concomitant]

REACTIONS (5)
  - Gallbladder injury [None]
  - Cholelithiasis [None]
  - Injury [None]
  - Pain [None]
  - Pain [None]
